FAERS Safety Report 9025887 (Version 1)
Quarter: 2012Q4

REPORT INFORMATION
  Report Type: 
  Country: US (occurrence: None)
  Receive Date: 20121214
  Receipt Date: 20121214
  Transmission Date: 20130627
  Serious: Yes (Death, Hospitalization)
  Sender: FDA-Public Use
  Company Number: None

PATIENT
  Sex: Male
  Weight: 75 kg

DRUGS (1)
  1. GEMCITABINE HYDROCHLORIDE [Suspect]
     Dates: end: 20121121

REACTIONS (16)
  - Haematotoxicity [None]
  - Fatigue [None]
  - Asthenia [None]
  - Hypophagia [None]
  - Abasia [None]
  - Nausea [None]
  - Decreased appetite [None]
  - Atrial fibrillation [None]
  - Oxygen saturation decreased [None]
  - Body temperature decreased [None]
  - Leukopenia [None]
  - Sepsis [None]
  - Hypotension [None]
  - Infection in an immunocompromised host [None]
  - Multi-organ failure [None]
  - Systemic inflammatory response syndrome [None]
